FAERS Safety Report 14994586 (Version 1)
Quarter: 2018Q2

REPORT INFORMATION
  Report Type: Spontaneous
  Country: IN (occurrence: IN)
  Receive Date: 20180611
  Receipt Date: 20180611
  Transmission Date: 20180711
  Serious: Yes (Hospitalization)
  Sender: FDA-Public Use
  Company Number: IN-ACCORD-067990

PATIENT
  Age: 60 Year
  Sex: Male

DRUGS (3)
  1. QUETIAPINE. [Suspect]
     Active Substance: QUETIAPINE
     Indication: MIXED DEMENTIA
     Dosage: DOSE REDUCED TO 50 MG AND SUBSEQUENTLY WITHDRAWN.
  2. CLONAZEPAM. [Suspect]
     Active Substance: CLONAZEPAM
     Indication: MIXED DEMENTIA
  3. DONEPEZIL/DONEPEZIL HYDROCHLORIDE [Suspect]
     Active Substance: DONEPEZIL HYDROCHLORIDE
     Indication: MIXED DEMENTIA
     Dosage: FOR MORE THAN 3 MONTHS

REACTIONS (2)
  - Pleurothotonus [Recovered/Resolved]
  - Drug ineffective [Unknown]
